FAERS Safety Report 8406744-9 (Version None)
Quarter: 2012Q2

REPORT INFORMATION
  Report Type: 
  Country: None (occurrence: None)
  Receive Date: 20120604
  Receipt Date: 20120523
  Transmission Date: 20120825
  Serious: Yes (Other)
  Sender: FDA-Public Use
  Company Number: JP-ELI_LILLY_AND_COMPANY-JP201205008669

PATIENT
  Age: 79 Year
  Sex: Male

DRUGS (5)
  1. AQUPLA [Concomitant]
     Indication: NON-SMALL CELL LUNG CANCER
     Dosage: 134 MG, OTHER
     Route: 042
     Dates: start: 20060720
  2. GEMZAR [Suspect]
     Indication: NON-SMALL CELL LUNG CANCER
     Dosage: 1340 MG, OTHER
     Route: 042
     Dates: start: 20060720
  3. SEROTONIN (5HT3) ANTAGONISTS [Concomitant]
     Indication: PROPHYLAXIS OF NAUSEA AND VOMITING
  4. MINOCYCLINE HYDROCHLORIDE [Concomitant]
     Route: 034
  5. DEXAMETHASONE [Concomitant]
     Indication: PROPHYLAXIS OF NAUSEA AND VOMITING

REACTIONS (1)
  - CEREBRAL INFARCTION [None]
